FAERS Safety Report 7471677-1 (Version None)
Quarter: 2011Q1

REPORT INFORMATION
  Report Type: 
  Country: None (occurrence: None)
  Receive Date: 20110302
  Receipt Date: 20100730
  Transmission Date: 20110831
  Serious: Yes (Other)
  Sender: FDA-Public Use
  Company Number: 163-21880-10080011

PATIENT
  Age: 77 Year
  Sex: Female

DRUGS (8)
  1. REVLIMID [Suspect]
     Indication: MULTIPLE MYELOMA
     Dosage: 25 MG, 1 IN 1 D, PO; 15 MG, PO
     Route: 048
     Dates: start: 20100524
  2. REVLIMID [Suspect]
     Indication: MULTIPLE MYELOMA
     Dosage: 25 MG, 1 IN 1 D, PO; 15 MG, PO
     Route: 048
     Dates: start: 20100730
  3. STOOL SOFTENER (DOCUSATE SODIUM) [Concomitant]
  4. METOPROLOL TARTRATE [Concomitant]
  5. ASPIRIN [Concomitant]
  6. MULTI-VITAMINS [Concomitant]
  7. INSULIN (INSULIN) [Concomitant]
  8. DEXAMETHASONE [Concomitant]

REACTIONS (3)
  - BLOOD GLUCOSE INCREASED [None]
  - RED BLOOD CELL COUNT INCREASED [None]
  - PLATELET COUNT DECREASED [None]
